FAERS Safety Report 19314697 (Version 1)
Quarter: 2021Q2

REPORT INFORMATION
  Report Type: Spontaneous
  Country: US (occurrence: US)
  Receive Date: 20210527
  Receipt Date: 20210527
  Transmission Date: 20210717
  Serious: No
  Sender: FDA-Public Use
  Company Number: US-SA-2021SA166586

PATIENT
  Age: 78 Year
  Sex: Female

DRUGS (1)
  1. TOUJEO MAX [Suspect]
     Active Substance: INSULIN GLARGINE
     Indication: TYPE 2 DIABETES MELLITUS
     Dosage: 20 U, ONCE DAILY
     Route: 065
     Dates: start: 20210502

REACTIONS (2)
  - Product storage error [Unknown]
  - Visual impairment [Unknown]

NARRATIVE: CASE EVENT DATE: 20210517
